FAERS Safety Report 11744639 (Version 1)
Quarter: 2015Q4

REPORT INFORMATION
  Report Type: Spontaneous
  Country: GB (occurrence: GB)
  Receive Date: 20151116
  Receipt Date: 20151116
  Transmission Date: 20160304
  Serious: Yes (Other)
  Sender: FDA-Public Use
  Company Number: GB-LUNDBECK-DKLU2006636

PATIENT
  Sex: Female

DRUGS (2)
  1. ANTIBIOTICS [Interacting]
     Active Substance: UNSPECIFIED INGREDIENT
     Indication: PRODUCT USED FOR UNKNOWN INDICATION
     Route: 065
  2. CLOBAZAM [Suspect]
     Active Substance: CLOBAZAM
     Indication: SEIZURE
     Route: 048

REACTIONS (9)
  - Coordination abnormal [Unknown]
  - Somnolence [Unknown]
  - Depressed mood [Unknown]
  - Fatigue [Unknown]
  - Blood glucose abnormal [Unknown]
  - Emotional disorder [Unknown]
  - Drug interaction [Unknown]
  - Expired product administered [Unknown]
  - Fall [Unknown]
